FAERS Safety Report 12751496 (Version 1)
Quarter: 2016Q3

REPORT INFORMATION
  Report Type: Spontaneous
  Country: CA (occurrence: CA)
  Receive Date: 20160915
  Receipt Date: 20160915
  Transmission Date: 20161109
  Serious: Yes (Other)
  Sender: FDA-Public Use
  Company Number: CA-JAZZ-2016-CA-005625

PATIENT
  Age: 9 Year
  Sex: Male

DRUGS (6)
  1. ERWINASE [Suspect]
     Active Substance: ASPARAGINASE ERWINIA CHRYSANTHEMI
     Indication: B PRECURSOR TYPE ACUTE LEUKAEMIA
     Dosage: 25000 IU/M2 - 24 DOSES
     Route: 042
  2. DIMENHYDRINATE. [Concomitant]
     Active Substance: DIMENHYDRINATE
     Indication: PREMEDICATION
     Dosage: 1 MG/KG, UNK
     Route: 042
  3. ONDANSETRON [Concomitant]
     Active Substance: ONDANSETRON
     Indication: PRODUCT USED FOR UNKNOWN INDICATION
     Dosage: 5 MG/M2, UNK
     Route: 042
  4. LORAZEPAM. [Concomitant]
     Active Substance: LORAZEPAM
     Indication: PREMEDICATION
     Dosage: 0.03 MG/KG, UNK
     Route: 042
  5. NABILONE [Concomitant]
     Active Substance: NABILONE
     Indication: PREMEDICATION
     Dosage: 1 MG, UNK
     Route: 042
  6. DIPHENHYDRAMINE. [Concomitant]
     Active Substance: DIPHENHYDRAMINE
     Indication: PREMEDICATION
     Dosage: 1 MG/KG, UNK
     Route: 042

REACTIONS (2)
  - Vomiting [Not Recovered/Not Resolved]
  - Nausea [Not Recovered/Not Resolved]
